FAERS Safety Report 7623473-X (Version None)
Quarter: 2011Q3

REPORT INFORMATION
  Report Type: 
  Country: None (occurrence: None)
  Receive Date: 20110720
  Receipt Date: 20110711
  Transmission Date: 20111222
  Serious: Yes (Death, Other)
  Sender: FDA-Public Use
  Company Number: PHHY2011JP63023

PATIENT
  Age: 58 Year
  Sex: Male

DRUGS (8)
  1. METHYLPREDNISOLONE [Suspect]
     Dosage: 500 MG, DAILY
  2. SULFAMETHOXAZOLE AND TRIMETHOPRIM [Suspect]
  3. PREDNISOLONE [Suspect]
     Dosage: 30 MG, DAILY
     Dates: start: 20081112
  4. AMPHOTERICIN B [Suspect]
  5. MEROPENEM [Concomitant]
  6. PREDNISOLONE [Suspect]
     Dosage: 15 MG, DAILY
     Dates: start: 20081210
  7. VORICONAZOLE [Suspect]
  8. VANCOMYCIN [Concomitant]
     Dosage: 1 G, DAILY

REACTIONS (9)
  - PYREXIA [None]
  - SCEDOSPORIUM INFECTION [None]
  - LUNG NEOPLASM [None]
  - MYCOBACTERIUM TEST POSITIVE [None]
  - ASPERGILLOSIS [None]
  - LUNG INFILTRATION [None]
  - PANCYTOPENIA [None]
  - DRUG INEFFECTIVE [None]
  - ACUTE RESPIRATORY FAILURE [None]
